FAERS Safety Report 5871402-1 (Version None)
Quarter: 2008Q3

REPORT INFORMATION
  Report Type: 
  Country: None (occurrence: None)
  Receive Date: 20080905
  Receipt Date: 20080827
  Transmission Date: 20090109
  Serious: Yes (Other)
  Sender: FDA-Public Use
  Company Number: PHHY2008CO19412

PATIENT

DRUGS (1)
  1. ACLASTA [Suspect]
     Dosage: 5 MG ANNUALY
     Route: 042
     Dates: start: 20080801

REACTIONS (4)
  - ABDOMINAL PAIN UPPER [None]
  - MYALGIA [None]
  - PYREXIA [None]
  - RECTAL HAEMORRHAGE [None]
